FAERS Safety Report 20129456 (Version 1)
Quarter: 2021Q4

REPORT INFORMATION
  Report Type: Spontaneous
  Country: FR (occurrence: FR)
  Receive Date: 20211130
  Receipt Date: 20211130
  Transmission Date: 20220304
  Serious: Yes (Other)
  Sender: FDA-Public Use
  Company Number: None

PATIENT
  Age: 65 Year
  Sex: Female

DRUGS (1)
  1. ZEJULA [Suspect]
     Active Substance: NIRAPARIB
     Indication: Adenocarcinoma
     Dosage: 100 MG, QD
     Route: 048
     Dates: start: 20210427, end: 202109

REACTIONS (2)
  - Retinal tear [Unknown]
  - Conjunctival haemorrhage [Unknown]

NARRATIVE: CASE EVENT DATE: 20210917
